FAERS Safety Report 4853667-8 (Version None)
Quarter: 2005Q4

REPORT INFORMATION
  Report Type: 
  Country: None (occurrence: None)
  Receive Date: 20051212
  Receipt Date: 20051128
  Transmission Date: 20060501
  Serious: Yes (Death)
  Sender: FDA-Public Use
  Company Number: JP_051108096

PATIENT
  Age: 76 Year
  Sex: Male

DRUGS (1)
  1. GEMZAR [Suspect]
     Indication: BILE DUCT CANCER
     Dosage: 1000 MG, OTHER, INTRAVENOUS
     Route: 042
     Dates: end: 20051001

REACTIONS (2)
  - PNEUMONITIS [None]
  - THERAPY NON-RESPONDER [None]
